FAERS Safety Report 8043224-7 (Version None)
Quarter: 2012Q1

REPORT INFORMATION
  Report Type: 
  Country: None (occurrence: None)
  Receive Date: 20120112
  Receipt Date: 20120103
  Transmission Date: 20120608
  Serious: Yes (Hospitalization)
  Sender: FDA-Public Use
  Company Number: IE-MEDIMMUNE-MEDI-0014340

PATIENT
  Sex: Female
  Weight: 3.85 kg

DRUGS (6)
  1. KAPSOVIT [Concomitant]
  2. INFACOL-C COLIC [Concomitant]
  3. FERROUS SULFATE TAB [Concomitant]
  4. COLICALM [Concomitant]
  5. LANSOPRAZOLE [Concomitant]
  6. SYNAGIS [Suspect]
     Route: 030
     Dates: start: 20111103, end: 20111103

REACTIONS (5)
  - VIRAL INFECTION [None]
  - GASTROOESOPHAGEAL REFLUX DISEASE [None]
  - HYPOPHAGIA [None]
  - BRONCHITIS [None]
  - BRONCHIOLITIS [None]
